FAERS Safety Report 8367531-3 (Version None)
Quarter: 2012Q2

REPORT INFORMATION
  Report Type: 
  Country: None (occurrence: None)
  Receive Date: 20120517
  Receipt Date: 20120508
  Transmission Date: 20120825
  Serious: Yes (Hospitalization, Other)
  Sender: FDA-Public Use
  Company Number: DE-MEDIMMUNE-MEDI-0014751

PATIENT
  Sex: Male

DRUGS (1)
  1. SYNAGIS [Suspect]
     Indication: ANTIVIRAL PROPHYLAXIS
     Dosage: 17 MG/KG ONCE 4 DAYS BEFORE EVENT ONSET AND ONCE FOLLOWING EVENT ONSET
     Route: 030

REACTIONS (2)
  - RESPIRATORY DISORDER [None]
  - PNEUMONIA RESPIRATORY SYNCYTIAL VIRAL [None]
